FAERS Safety Report 26119410 (Version 2)
Quarter: 2025Q4

REPORT INFORMATION
  Report Type: Spontaneous
  Country: GB (occurrence: GB)
  Receive Date: 20251204
  Receipt Date: 20251212
  Transmission Date: 20260118
  Serious: Yes (Other)
  Sender: SANDOZ
  Company Number: None

PATIENT
  Age: 54 Year
  Sex: Female
  Weight: 88 kg

DRUGS (48)
  1. ATORVASTATIN [Suspect]
     Active Substance: ATORVASTATIN
     Indication: Ill-defined disorder
     Dosage: TAKE ONE DAILY
     Route: 065
     Dates: start: 20230615, end: 20251103
  2. ROSUVASTATIN [Suspect]
     Active Substance: ROSUVASTATIN
     Indication: Ill-defined disorder
     Dosage: TAKE ONE TABLET EACH DAY TO HELP LOWER CHOLESTEROL
     Route: 065
     Dates: start: 20250925, end: 20251103
  3. ROSUVASTATIN [Suspect]
     Active Substance: ROSUVASTATIN
     Indication: Blood cholesterol decreased
  4. ROSUVASTATIN [Suspect]
     Active Substance: ROSUVASTATIN
     Indication: Blood cholesterol increased
  5. ALENDRONIC ACID [Concomitant]
     Active Substance: ALENDRONIC ACID
     Indication: Ill-defined disorder
     Dosage: TAKE ONE TABLET ON THE SAME DAY EACH WEEK TO HE...
     Route: 065
     Dates: start: 20240618
  6. ARIPIPRAZOLE [Concomitant]
     Active Substance: ARIPIPRAZOLE
     Dosage: TAKE ONE EVERY DAY
     Route: 065
     Dates: start: 20240216
  7. ARIPIPRAZOLE [Concomitant]
     Active Substance: ARIPIPRAZOLE
     Indication: Ill-defined disorder
     Dosage: TAKE ONE EVERY DAY
     Route: 065
     Dates: start: 20240216
  8. BACLOFEN [Concomitant]
     Active Substance: BACLOFEN
     Indication: Ill-defined disorder
     Dosage: TAKE HALF  TABLET THREE TIMES A DAY FOR TOW WEE...
     Route: 065
     Dates: start: 20250729
  9. BACLOFEN [Concomitant]
     Active Substance: BACLOFEN
     Indication: Ill-defined disorder
  10. BACLOFEN [Concomitant]
     Active Substance: BACLOFEN
     Indication: Ill-defined disorder
  11. BISOPROLOL [Concomitant]
     Active Substance: BISOPROLOL
     Indication: Ill-defined disorder
     Dosage: TAKE ONE TABLET ONCE A DAY INSTEAD OF PROPRANOL...
     Route: 065
     Dates: start: 20250730
  12. BISOPROLOL [Concomitant]
     Active Substance: BISOPROLOL
     Indication: Ill-defined disorder
     Dosage: TAKE ONE TABLET ONCE A DAY INSTEAD OF PROPRANOL...
     Route: 065
     Dates: start: 20250730
  13. BISOPROLOL [Concomitant]
     Active Substance: BISOPROLOL
     Indication: Ill-defined disorder
  14. CALCIPOTRIENE [Concomitant]
     Active Substance: CALCIPOTRIENE
     Indication: Ill-defined disorder
     Dosage: USE TWICE DAILY
     Route: 065
     Dates: start: 20250714
  15. CALCIPOTRIENE [Concomitant]
     Active Substance: CALCIPOTRIENE
     Indication: Ill-defined disorder
  16. CALCIPOTRIENE [Concomitant]
     Active Substance: CALCIPOTRIENE
     Indication: Ill-defined disorder
  17. CINNARIZINE [Concomitant]
     Active Substance: CINNARIZINE
     Indication: Nausea
     Dosage: TAKE TWO TABLETS THREE TIMES A DAY FOR NAUSEA A...
     Route: 065
     Dates: start: 20250722
  18. CINNARIZINE [Concomitant]
     Active Substance: CINNARIZINE
     Indication: Ill-defined disorder
     Dosage: TAKE TWO TABLETS THREE TIMES A DAY FOR NAUSEA A...
     Route: 065
     Dates: start: 20250722
  19. CINNARIZINE [Concomitant]
     Active Substance: CINNARIZINE
     Indication: Ill-defined disorder
  20. CINNARIZINE [Concomitant]
     Active Substance: CINNARIZINE
     Indication: Ill-defined disorder
  21. CHOLECALCIFEROL [Concomitant]
     Active Substance: CHOLECALCIFEROL
     Indication: Ill-defined disorder
     Dosage: TAKE ONCE A WEEK ON ATHURDYA
     Route: 065
     Dates: start: 20250722
  22. CHOLECALCIFEROL [Concomitant]
     Active Substance: CHOLECALCIFEROL
     Indication: Ill-defined disorder
  23. CHOLECALCIFEROL [Concomitant]
     Active Substance: CHOLECALCIFEROL
     Indication: Ill-defined disorder
  24. CYCLIZINE [Concomitant]
     Active Substance: CYCLIZINE
     Dosage: TAKE ONE TABLET UP TO THREE TIMES A DAY TO HELP...
     Route: 065
     Dates: start: 20230615, end: 20250910
  25. CYCLIZINE [Concomitant]
     Active Substance: CYCLIZINE
     Indication: Ill-defined disorder
     Dosage: TAKE ONE TABLET UP TO THREE TIMES A DAY TO HELP..
     Route: 065
     Dates: start: 20230615, end: 20250910
  26. EDOXABAN [Concomitant]
     Active Substance: EDOXABAN
     Indication: Ill-defined disorder
     Dosage: TAKE ONE TABLET ONCE A DAY TO HELP PREVENT BLOO...
     Route: 065
     Dates: start: 20230615
  27. EMPAGLIFLOZIN [Concomitant]
     Active Substance: EMPAGLIFLOZIN
     Dosage: TAKE ONE DAILY
     Route: 065
     Dates: start: 20250708
  28. EMPAGLIFLOZIN [Concomitant]
     Active Substance: EMPAGLIFLOZIN
     Indication: Ill-defined disorder
     Dosage: 1 DF, QD
     Route: 065
     Dates: start: 20250708
  29. MINERAL OIL\PARAFFIN [Concomitant]
     Active Substance: MINERAL OIL\PARAFFIN
     Indication: Ill-defined disorder
     Dosage: (MILD DRY SKIN) APPLY AS DIRECTED AS A SKIN MOI...
     Route: 065
     Dates: start: 20230615, end: 20250910
  30. FERROUS FUMARATE [Concomitant]
     Active Substance: FERROUS FUMARATE
     Indication: Anaemia
     Dosage: TAKE ONE TABLET ONCE A DAY ON AN EMPTY STOMACH TO TREAT ANAEMIA.  CONTINUE UNTIL 3 MONTHS AFTER BLOO
     Route: 065
     Dates: start: 20251008
  31. FERROUS FUMARATE [Concomitant]
     Active Substance: FERROUS FUMARATE
     Indication: Ill-defined disorder
     Dosage: TAKE ONE TABLET ONCE A DAY ON AN EMPTY STOMACH TO TREAT ANAEMIA. CONTINUE UNTIL 3 MONTHS AFTER BLOOD
     Route: 065
     Dates: start: 20251008
  32. GLICLAZIDE [Concomitant]
     Active Substance: GLICLAZIDE
     Indication: Ill-defined disorder
     Dosage: TAKE TWO TABLETS TWICE DAILY WITH FOOD.
     Route: 065
     Dates: start: 20250729
  33. GLICLAZIDE [Concomitant]
     Active Substance: GLICLAZIDE
     Indication: Ill-defined disorder
     Dosage: TAKE TWO TABLETS TWICE DAILY WITH FOOD.
     Route: 065
     Dates: start: 20250729
  34. GLICLAZIDE [Concomitant]
     Active Substance: GLICLAZIDE
     Indication: Ill-defined disorder
  35. MEBEVERINE HYDROCHLORIDE [Concomitant]
     Active Substance: MEBEVERINE HYDROCHLORIDE
     Dosage: TAKE ONE 3 TIMES/DAY
     Route: 065
     Dates: start: 20250722
  36. MEBEVERINE HYDROCHLORIDE [Concomitant]
     Active Substance: MEBEVERINE HYDROCHLORIDE
     Indication: Ill-defined disorder
     Dosage: TAKE ONE 3 TIMES/DAY
     Route: 065
     Dates: start: 20250722
  37. METFORMIN [Concomitant]
     Active Substance: METFORMIN HYDROCHLORIDE
     Indication: Ill-defined disorder
     Dosage: 2 WITH BREAKFAST AND 2 WITH DINNER
     Route: 065
     Dates: start: 20230615
  38. MIRTAZAPINE [Concomitant]
     Active Substance: MIRTAZAPINE
     Indication: Ill-defined disorder
     Dosage: TAKE ONE TABLET AT NIGHT TO HELP PREVENT LOW MOOD
     Route: 065
     Dates: start: 20250729
  39. MIRTAZAPINE [Concomitant]
     Active Substance: MIRTAZAPINE
     Indication: Ill-defined disorder
  40. MIRTAZAPINE [Concomitant]
     Active Substance: MIRTAZAPINE
     Indication: Ill-defined disorder
  41. OMEPRAZOLE [Concomitant]
     Active Substance: OMEPRAZOLE
     Dosage: TAKE ONE TWICE DAILY
     Route: 065
     Dates: start: 20230615
  42. OMEPRAZOLE [Concomitant]
     Active Substance: OMEPRAZOLE
     Indication: Ill-defined disorder
     Dosage: TAKE ONE TWICE DAILY
     Route: 065
     Dates: start: 20230615
  43. ACETAMINOPHEN [Concomitant]
     Active Substance: ACETAMINOPHEN
     Dosage: 2 TABLETS FOUR TIMES DAILY
     Route: 065
     Dates: start: 20230615
  44. ACETAMINOPHEN [Concomitant]
     Active Substance: ACETAMINOPHEN
     Indication: Ill-defined disorder
     Dosage: 2 TABLETS FOUR TIMES DAILY
     Route: 065
     Dates: start: 20230615
  45. VENLAFAXINE [Concomitant]
     Active Substance: VENLAFAXINE HYDROCHLORIDE
     Indication: Ill-defined disorder
     Dosage: TAKE TWO EACH MORNING AND ONE AT NIGHT
     Route: 065
     Dates: start: 20230615
  46. MORPHINE SULFATE [Concomitant]
     Active Substance: MORPHINE SULFATE
     Indication: Ill-defined disorder
     Dosage: (MORPHINE SULPHATE) TAKE ONE CAPSULE TWICE A DA...
     Route: 065
     Dates: start: 20250729
  47. MORPHINE SULFATE [Concomitant]
     Active Substance: MORPHINE SULFATE
     Indication: Ill-defined disorder
  48. MORPHINE SULFATE [Concomitant]
     Active Substance: MORPHINE SULFATE
     Indication: Ill-defined disorder

REACTIONS (3)
  - Joint swelling [Recovered/Resolved]
  - Arthralgia [Unknown]
  - Myalgia [Recovered/Resolved]
